FAERS Safety Report 24855682 (Version 1)
Quarter: 2025Q1

REPORT INFORMATION
  Report Type: Spontaneous
  Country: US (occurrence: US)
  Receive Date: 20250117
  Receipt Date: 20250117
  Transmission Date: 20250409
  Serious: Yes (Other)
  Sender: AJANTA PHARMA USA INC
  Company Number: US-AJANTA-2025AJA00004

PATIENT
  Age: 77 Year
  Sex: Male
  Weight: 185 kg

DRUGS (9)
  1. FENOFIBRATE [Suspect]
     Active Substance: FENOFIBRATE
     Indication: Blood triglycerides increased
     Dates: start: 20240830
  2. LOSARTAN [Concomitant]
     Active Substance: LOSARTAN
  3. ATENOLOL [Concomitant]
     Active Substance: ATENOLOL
  4. TRESIBA [Concomitant]
     Active Substance: INSULIN DEGLUDEC
  5. VITAMIN D NOS [Concomitant]
     Active Substance: CHOLECALCIFEROL\ERGOCALCIFEROL
  6. ASPIRIN [Concomitant]
     Active Substance: ASPIRIN
  7. COENZYME Q10 [Concomitant]
     Active Substance: DIETARY SUPPLEMENT\UBIDECARENONE
  8. VITAMIN C [Concomitant]
     Active Substance: ASCORBIC ACID
  9. LORAZEPAM [Concomitant]
     Active Substance: LORAZEPAM

REACTIONS (1)
  - Chronic kidney disease [Recovering/Resolving]

NARRATIVE: CASE EVENT DATE: 20241106
